FAERS Safety Report 7124361-8 (Version None)
Quarter: 2010Q4

REPORT INFORMATION
  Report Type: 
  Country: None (occurrence: None)
  Receive Date: 20101126
  Receipt Date: 20101123
  Transmission Date: 20110411
  Serious: Yes (Death)
  Sender: FDA-Public Use
  Company Number: PHHY2010US76391

PATIENT
  Sex: Male

DRUGS (1)
  1. CLOZARIL [Suspect]
     Indication: SCHIZOPHRENIA
     Dosage: 162.5 MG, QD
     Route: 048
     Dates: start: 20020101

REACTIONS (1)
  - MYOCARDIAL INFARCTION [None]
